FAERS Safety Report 9157730 (Version 1)
Quarter: 2013Q1

REPORT INFORMATION
  Report Type: Spontaneous
  Country: US (occurrence: None)
  Receive Date: 20130311
  Receipt Date: 20130311
  Transmission Date: 20140127
  Serious: Yes (Disabling)
  Sender: FDA-Public Use
  Company Number: None

PATIENT
  Age: 27 Year
  Sex: Female
  Weight: 47.63 kg

DRUGS (2)
  1. LORAZEPAM 0.5MG [Suspect]
     Indication: ANXIETY
     Route: 048
  2. BENZODIAZEPINES [Concomitant]

REACTIONS (8)
  - Withdrawal syndrome [None]
  - Fear [None]
  - Agitation [None]
  - Panic reaction [None]
  - Tachyphrenia [None]
  - Derealisation [None]
  - Illusion [None]
  - Dependence [None]
